FAERS Safety Report 7239549-5 (Version None)
Quarter: 2011Q1

REPORT INFORMATION
  Report Type: 
  Country: None (occurrence: None)
  Receive Date: 20110121
  Receipt Date: 20100507
  Transmission Date: 20110831
  Serious: No
  Sender: FDA-Public Use
  Company Number: US-PFIZER INC-2010058243

PATIENT
  Sex: Male
  Weight: 86 kg

DRUGS (9)
  1. ZETIA [Interacting]
     Dosage: 10 MG PILL CUTTING IN HALF 5MG DAILY
  2. WARFARIN SODIUM [Interacting]
     Indication: THROMBOSIS
     Dosage: 10 MG, 1X/DAY WITH 11MG ON MONDAY AND THURSDAY
  3. TOPROL-XL [Interacting]
     Indication: HYPERTENSION
     Dosage: 50 MG, 1X/DAY
  4. PROTONIX [Interacting]
     Indication: GASTROOESOPHAGEAL REFLUX DISEASE
     Dosage: 40 MG, 1X/DAY
  5. TORSEMIDE [Interacting]
     Dosage: 20 MG PILL IN HALF 10MG DAILY
     Route: 048
  6. LOVASTATIN [Interacting]
     Indication: BLOOD CHOLESTEROL INCREASED
     Dosage: 40 MG, 2X/DAY
     Route: 048
  7. NIFEDIPINE [Suspect]
     Dosage: UNK
     Dates: start: 20100401
  8. GLUCOPHAGE XR [Interacting]
     Indication: DIABETES MELLITUS
     Dosage: 500 MG, 2X/DAY
  9. COZAAR [Interacting]
     Indication: HYPERTENSION
     Dosage: 50 MG, 1X/DAY
     Route: 048

REACTIONS (2)
  - DRUG INTERACTION [None]
  - DIZZINESS POSTURAL [None]
